FAERS Safety Report 9834569 (Version 2)
Quarter: 2014Q1

REPORT INFORMATION
  Report Type: Other
  Country: US (occurrence: US)
  Receive Date: 20140122
  Receipt Date: 20140122
  Transmission Date: 20141002
  Serious: Yes (Hospitalization)
  Sender: FDA-Public Use
  Company Number: US-ACORDA-ACO_35420_2013

PATIENT
  Sex: Female

DRUGS (8)
  1. AMPYRA [Suspect]
     Indication: GAIT DISTURBANCE
     Dosage: 10 MG, BID
     Route: 048
     Dates: start: 201003, end: 201306
  2. AVONEX [Suspect]
     Indication: MULTIPLE SCLEROSIS
     Dosage: 30 ?G, WEEKLY
     Route: 030
     Dates: start: 200206
  3. BONIVA [Concomitant]
     Indication: OSTEOPOROSIS
     Dosage: UNK, 1 X / YEAR
     Route: 042
     Dates: start: 2013
  4. NORVASC [Concomitant]
     Indication: HYPERTENSION
     Dosage: 5 MG, QD
     Route: 048
     Dates: start: 201306
  5. B COMPLEX [Concomitant]
     Indication: VITAMIN B12 DECREASED
     Dosage: 100 MG, QD
     Route: 048
     Dates: start: 2002
  6. VITAMIN D [Concomitant]
     Indication: VITAMIN D DECREASED
     Dosage: 1000 IU, BID
     Route: 048
     Dates: start: 2009
  7. CALCIUM + VITAMIN D [Concomitant]
     Indication: MENOPAUSE
     Dosage: 600/200, BID
     Route: 048
     Dates: start: 2002
  8. CALCIUM + VITAMIN D [Concomitant]
     Indication: VITAMIN D DECREASED

REACTIONS (6)
  - Renal cell carcinoma [Not Recovered/Not Resolved]
  - Muscular weakness [Recovered/Resolved]
  - Feeling abnormal [Recovering/Resolving]
  - Depression [Recovering/Resolving]
  - Gait disturbance [Recovered/Resolved]
  - Nasopharyngitis [Recovered/Resolved]
